FAERS Safety Report 8166480-3 (Version None)
Quarter: 2012Q1

REPORT INFORMATION
  Report Type: 
  Country: None (occurrence: None)
  Receive Date: 20120227
  Receipt Date: 20110915
  Transmission Date: 20120608
  Serious: No
  Sender: FDA-Public Use
  Company Number: US-MYLANLABS-2011S1018701

PATIENT
  Age: 25 Year
  Sex: Male
  Weight: 81.65 kg

DRUGS (2)
  1. AMNESTEEM [Suspect]
     Indication: ACNE CYSTIC
  2. CLARAVIS [Suspect]
     Indication: ACNE CYSTIC

REACTIONS (1)
  - BLOOD TRIGLYCERIDES INCREASED [None]
